FAERS Safety Report 15965924 (Version 1)
Quarter: 2019Q1

REPORT INFORMATION
  Report Type: Spontaneous
  Country: US (occurrence: US)
  Receive Date: 20190215
  Receipt Date: 20190215
  Transmission Date: 20190418
  Serious: No
  Sender: FDA-Public Use
  Company Number: US-PFIZER INC-2019062140

PATIENT
  Age: 45 Year
  Sex: Male

DRUGS (1)
  1. LYRICA [Suspect]
     Active Substance: PREGABALIN
     Indication: ARTHRALGIA
     Dosage: 250 MG, DAILY (100MG IN THE MORNING, 50MG IN AFTERNOON, 100MG AT NIGHT)

REACTIONS (2)
  - Product use in unapproved indication [Unknown]
  - Drug hypersensitivity [Unknown]
